FAERS Safety Report 6467625-3 (Version None)
Quarter: 2009Q4

REPORT INFORMATION
  Report Type: 
  Country: None (occurrence: None)
  Receive Date: 20091202
  Receipt Date: 20091120
  Transmission Date: 20100525
  Serious: Yes (Hospitalization, Other)
  Sender: FDA-Public Use
  Company Number: PHHY2009BR50956

PATIENT
  Age: 71 Year
  Sex: Female
  Weight: 68 kg

DRUGS (3)
  1. DIOVAN HCT [Suspect]
     Indication: HYPERTENSION
     Dosage: 1 TABLET (320/12.5 MG), IN THE MORNING
     Route: 048
  2. FLUOXETINE HYDROCHLORIDE [Concomitant]
     Indication: PANIC DISORDER
     Dosage: 20 MG, 1 TABLET IN THE MORNING
     Route: 048
  3. FLUOXETINE HYDROCHLORIDE [Concomitant]
     Indication: DEPRESSION

REACTIONS (3)
  - BLOOD PRESSURE INCREASED [None]
  - CARDIOVASCULAR DISORDER [None]
  - URINE OUTPUT INCREASED [None]
